FAERS Safety Report 18582434 (Version 36)
Quarter: 2022Q3

REPORT INFORMATION
  Report Type: Spontaneous
  Country: GB (occurrence: GB)
  Receive Date: 20201205
  Receipt Date: 20220822
  Transmission Date: 20221026
  Serious: Yes (Life-Threatening, Hospitalization, Other)
  Sender: FDA-Public Use
  Company Number: GB-MYLANLABS-2020M1095340

PATIENT
  Sex: Male

DRUGS (35)
  1. CLOPIDOGREL [Suspect]
     Active Substance: CLOPIDOGREL BISULFATE
     Indication: Transient ischaemic attack
     Dosage: 75 MILLIGRAM, ONCE A DAY
     Route: 048
     Dates: start: 20090819, end: 202011
  2. CLOPIDOGREL [Suspect]
     Active Substance: CLOPIDOGREL BISULFATE
     Indication: Schizophrenia
     Dosage: 75 MILLIGRAM, ONCE A DAY
     Route: 048
     Dates: start: 20200819, end: 202011
  3. CLOPIDOGREL [Suspect]
     Active Substance: CLOPIDOGREL BISULFATE
     Dosage: 75 MILLIGRAM, ONCE A DAY (75 MG, 1X/DAY)
     Route: 048
     Dates: start: 202011
  4. SERTRALINE [Suspect]
     Active Substance: SERTRALINE HYDROCHLORIDE
     Indication: Depressed mood
     Dosage: 150 MILLIGRAM
     Route: 048
  5. SERTRALINE [Suspect]
     Active Substance: SERTRALINE HYDROCHLORIDE
     Indication: Schizophrenia
     Dosage: 40 MILLIGRAM, ONCE A DAY
     Route: 048
  6. SERTRALINE [Suspect]
     Active Substance: SERTRALINE HYDROCHLORIDE
     Indication: Hyperlipidaemia
     Dosage: 15 MILLIGRAM
     Route: 048
  7. SIMVASTATIN [Suspect]
     Active Substance: SIMVASTATIN
     Indication: Hyperlipidaemia
     Dosage: 40 MILLIGRAM, ONCE A DAY
     Route: 048
  8. CLOPIDOGREL BISULFATE [Suspect]
     Active Substance: CLOPIDOGREL BISULFATE
     Indication: Transient ischaemic attack
     Dosage: 75 MILLIGRAM, ONCE A DAY
     Route: 048
     Dates: start: 20200819, end: 202011
  9. CLOPIDOGREL BISULFATE [Suspect]
     Active Substance: CLOPIDOGREL BISULFATE
     Indication: Schizophrenia
     Dosage: 75 MILLIGRAM, ONCE A DAY( (15MG/ML))
     Route: 048
     Dates: start: 202011, end: 202011
  10. CLOPIDOGREL BISULFATE [Suspect]
     Active Substance: CLOPIDOGREL BISULFATE
     Dosage: 75 MILLIGRAM, ONCE A DAY
     Route: 048
     Dates: start: 20090819, end: 202101
  11. CLOZAPINE [Suspect]
     Active Substance: CLOZAPINE
     Indication: Extrapyramidal disorder
     Dosage: 75 MILLIGRAM, ONCE A DAY
     Route: 048
     Dates: start: 20090619, end: 202011
  12. CLOZAPINE [Suspect]
     Active Substance: CLOZAPINE
     Indication: Schizophrenia
     Dosage: 75 MILLIGRAM, ONCE A DAY
     Route: 048
     Dates: start: 20090819, end: 202101
  13. CLOZAPINE [Suspect]
     Active Substance: CLOZAPINE
     Indication: Transient ischaemic attack
     Dosage: 75 MILLIGRAM, ONCE A DAY
     Route: 048
     Dates: start: 20200819
  14. CLOZAPINE [Suspect]
     Active Substance: CLOZAPINE
     Dosage: 74 MILLIGRAM, ONCE A DAY
     Route: 048
  15. CLOZARIL [Suspect]
     Active Substance: CLOZAPINE
     Indication: Transient ischaemic attack
     Dosage: 75 MILLIGRAM, ONCE A DAY
     Route: 048
     Dates: start: 20090619, end: 202011
  16. CLOZARIL [Suspect]
     Active Substance: CLOZAPINE
     Indication: Schizophrenia
     Dosage: 1 DOSAGE FORM, ONCE A DAY
     Route: 048
     Dates: start: 20090619, end: 202011
  17. CLOZARIL [Suspect]
     Active Substance: CLOZAPINE
     Indication: Extrapyramidal disorder
     Dosage: 75 MILLIGRAM, ONCE A DAY
     Route: 048
     Dates: start: 20090819, end: 202101
  18. CLOZARIL [Suspect]
     Active Substance: CLOZAPINE
     Dosage: 75 MILLIGRAM, ONCE A DAY
     Route: 048
     Dates: start: 20200819, end: 202011
  19. CLOZARIL [Suspect]
     Active Substance: CLOZAPINE
     Dosage: 1 DOSAGE FORM, ONCE A DAY
     Route: 065
     Dates: start: 20090819, end: 202011
  20. FOLIC ACID [Suspect]
     Active Substance: FOLIC ACID
     Indication: Blood folate decreased
     Dosage: 5 MILLIGRAM, ONCE A DAY
     Route: 048
  21. FOLIC ACID [Suspect]
     Active Substance: FOLIC ACID
     Indication: Extrapyramidal disorder
     Dosage: 15 MILLIGRAM, ONCE A DAY
     Route: 048
  22. FOLIC ACID [Suspect]
     Active Substance: FOLIC ACID
     Dosage: 45 MILLIGRAM, ONCE A DAY
     Route: 048
  23. FOLIC ACID [Suspect]
     Active Substance: FOLIC ACID
     Dosage: 45 MICROGRAM, ONCE A DAY
     Route: 065
  24. FOLIC ACID [Suspect]
     Active Substance: FOLIC ACID
     Dosage: 5 MILLIGRAM, 3 TIMES A DAY
     Route: 048
  25. FOLIC ACID [Suspect]
     Active Substance: FOLIC ACID
     Dosage: 40 MILLIGRAM, ONCE A DAY
     Route: 048
  26. PROCYCLIDINE [Suspect]
     Active Substance: PROCYCLIDINE
     Indication: Extrapyramidal disorder
     Dosage: 15 MILLIGRAM, ONCE A DAY
     Route: 048
  27. PROCYCLIDINE [Suspect]
     Active Substance: PROCYCLIDINE
     Indication: Vitamin B complex deficiency
     Dosage: 5 MILLIGRAM, 3 TIMES A DAY, VITAMIN B COMPLEX DEFICIENCY
     Route: 048
  28. PROCYCLIDINE [Suspect]
     Active Substance: PROCYCLIDINE
     Dosage: 40 MILLIGRAM, ONCE A DAY
     Route: 048
  29. PROCYCLIDINE [Suspect]
     Active Substance: PROCYCLIDINE
     Dosage: 45 MILLIGRAM, ONCE A DAY 45 MILLIGRAM(45 MG, QD 15 MILLIGRAM, QD (5 MG, 3X/DAY, 15 MILLIGRAM, QD)
     Route: 048
  30. PROCYCLIDINE [Suspect]
     Active Substance: PROCYCLIDINE
     Dosage: 5 MILLIGRAM, ONCE A DAY
     Route: 048
  31. PROCYCLIDINE [Suspect]
     Active Substance: PROCYCLIDINE
     Dosage: 45 MILLIGRAM
     Route: 048
  32. SERTRALINE HYDROCHLORIDE [Suspect]
     Active Substance: SERTRALINE HYDROCHLORIDE
     Indication: Hyperlipidaemia
     Dosage: 150 MILLIGRAM, ONCE A DAY
     Route: 048
  33. SERTRALINE HYDROCHLORIDE [Suspect]
     Active Substance: SERTRALINE HYDROCHLORIDE
     Indication: Depressed mood
     Dosage: 40 MILLIGRAM, ONCE A DAY
     Route: 048
  34. SERTRALINE HYDROCHLORIDE [Suspect]
     Active Substance: SERTRALINE HYDROCHLORIDE
     Indication: Schizophrenia
     Dosage: 15 MILLIGRAM, ONCE A DAY
     Route: 048
  35. THIAMINE HYDROCHLORIDE [Suspect]
     Active Substance: THIAMINE HYDROCHLORIDE
     Indication: Vitamin B complex deficiency
     Dosage: 300 MILLIGRAM, ONCE A DAY
     Route: 048

REACTIONS (9)
  - Fall [Unknown]
  - Hospitalisation [Unknown]
  - Blood folate decreased [Unknown]
  - Vitamin B complex deficiency [Unknown]
  - Product dose omission issue [Unknown]
  - Product use issue [Unknown]
  - Intentional product misuse [Unknown]
  - Medication error [Unknown]
  - Off label use [Unknown]

NARRATIVE: CASE EVENT DATE: 20201106
